FAERS Safety Report 5712680-9 (Version None)
Quarter: 2008Q2

REPORT INFORMATION
  Report Type: 
  Country: None (occurrence: None)
  Receive Date: 20080418
  Receipt Date: 20080409
  Transmission Date: 20081010
  Serious: Yes (Death)
  Sender: FDA-Public Use
  Company Number: 14011589

PATIENT
  Sex: Female
  Weight: 97.05 kg

DRUGS (24)
  1. EMSAM [Suspect]
     Dosage: 12 MILLIGRAM, 1/1 DAY
  2. METHAMPHETAMINE HYDROCHLORIDE [Suspect]
     Dosage: 4 TOTAL
  3. CHANTIX [Concomitant]
  4. NORCO [Concomitant]
  5. ZANAFLEX [Concomitant]
  6. ALBUTEROL [Concomitant]
  7. QVAR 40 [Concomitant]
  8. CLARITIN [Concomitant]
  9. SYNTHROID [Concomitant]
  10. PROVIGIL [Concomitant]
  11. SEROQUEL [Concomitant]
  12. NEXIUM [Concomitant]
  13. KLONOPIN [Concomitant]
  14. DOCUSATE [Concomitant]
  15. LYRICA [Concomitant]
  16. SINGULAIR [Concomitant]
  17. COGENTIN [Concomitant]
  18. DDAVP [Concomitant]
  19. MULTI-VITAMIN [Concomitant]
  20. HYDROCORTISONE [Concomitant]
  21. AMITIZA [Concomitant]
  22. INDERAL [Concomitant]
  23. IBUPROFEN TABLETS [Concomitant]
  24. AUGMENTIN '125' [Concomitant]

REACTIONS (10)
  - APPLICATION SITE ERYTHEMA [None]
  - COMPLETED SUICIDE [None]
  - CYST [None]
  - DERMATITIS ALLERGIC [None]
  - DYSKINESIA [None]
  - EYE DISORDER [None]
  - INSOMNIA [None]
  - MIGRAINE [None]
  - ORAL DISORDER [None]
  - PAIN [None]
